FAERS Safety Report 11184267 (Version 2)
Quarter: 2015Q2

REPORT INFORMATION
  Report Type: Spontaneous
  Country: US (occurrence: US)
  Receive Date: 20150612
  Receipt Date: 20150612
  Transmission Date: 20150821
  Serious: No
  Sender: FDA-Public Use
  Company Number: US-BAYER-2015-306744

PATIENT
  Age: 19 Year
  Sex: Female

DRUGS (1)
  1. SKYLA [Suspect]
     Active Substance: LEVONORGESTREL
     Indication: DYSMENORRHOEA
     Dosage: 14 MCG/24HR, CONT
     Route: 015
     Dates: start: 20150603

REACTIONS (2)
  - Off label use of device [None]
  - Expired device used [None]

NARRATIVE: CASE EVENT DATE: 20150603
